FAERS Safety Report 14800592 (Version 2)
Quarter: 2018Q2

REPORT INFORMATION
  Report Type: Report from Study
  Country: BR (occurrence: BR)
  Receive Date: 20180424
  Receipt Date: 20180512
  Transmission Date: 20180711
  Serious: Yes (Life-Threatening, Hospitalization)
  Sender: FDA-Public Use
  Company Number: PHHY2018BR071599

PATIENT
  Sex: Female
  Weight: 44 kg

DRUGS (1)
  1. ACLASTA [Suspect]
     Active Substance: ZOLEDRONIC ACID
     Indication: OSTEOPOROSIS
     Dosage: 1 DF, Q12MO
     Route: 042
     Dates: start: 2015, end: 2015

REACTIONS (3)
  - Neoplasm malignant [Not Recovered/Not Resolved]
  - Malaise [Unknown]
  - Arthralgia [Unknown]
